FAERS Safety Report 22366687 (Version 1)
Quarter: 2023Q2

REPORT INFORMATION
  Report Type: Report from Study
  Country: GB (occurrence: GB)
  Receive Date: 20230525
  Receipt Date: 20230525
  Transmission Date: 20230722
  Serious: Yes (Other)
  Sender: FDA-Public Use
  Company Number: GB-002147023-NVSC2023GB019530

PATIENT
  Sex: Female

DRUGS (1)
  1. KESIMPTA [Suspect]
     Active Substance: OFATUMUMAB
     Indication: Multiple sclerosis
     Dosage: 20 MG, QMO
     Route: 058
     Dates: start: 20230120

REACTIONS (6)
  - Hypothyroidism [Unknown]
  - Influenza like illness [Recovered/Resolved]
  - Urinary tract infection [Unknown]
  - Candida infection [Unknown]
  - Flushing [Recovered/Resolved]
  - Headache [Unknown]
